FAERS Safety Report 12583528 (Version 1)
Quarter: 2016Q3

REPORT INFORMATION
  Report Type: Report from Study
  Country: CN (occurrence: CN)
  Receive Date: 20160722
  Receipt Date: 20160722
  Transmission Date: 20161109
  Serious: Yes (Other)
  Sender: FDA-Public Use
  Company Number: CN-GILEAD-2016-0224310

PATIENT
  Age: 40 Year
  Sex: Female

DRUGS (1)
  1. ADEFOVIR DIPIVOXIL. [Suspect]
     Active Substance: ADEFOVIR DIPIVOXIL
     Indication: HEPATITIS B
     Route: 065

REACTIONS (3)
  - Treatment noncompliance [Unknown]
  - Viral load decreased [Unknown]
  - Therapeutic response decreased [Unknown]
